FAERS Safety Report 5062172-8 (Version None)
Quarter: 2006Q3

REPORT INFORMATION
  Report Type: 
  Country: None (occurrence: None)
  Receive Date: 20060721
  Receipt Date: 20060706
  Transmission Date: 20061208
  Serious: Yes (Other)
  Sender: FDA-Public Use
  Company Number: PHBS2006ES10179

PATIENT
  Age: 64 Year
  Sex: Male

DRUGS (9)
  1. CYCLOSPORINE [Suspect]
     Indication: RENAL TRANSPLANT
     Dosage: SEE IMAGE
     Dates: start: 19960101
  2. PREDNISOLONE [Suspect]
     Indication: RENAL TRANSPLANT
     Dosage: SEE IMAGE
     Dates: start: 19960101
  3. MYCOPHENOLATE MOFETIL [Suspect]
     Indication: RENAL TRANSPLANT
     Dosage: SEE IMAGE
  4. CERTICAN (EVEROLIMUS) [Concomitant]
  5. DOXAZOSIN (DOXAZOSIN) [Concomitant]
  6. ATENOLOL [Concomitant]
  7. LOSARTAN POTASSIUM [Concomitant]
  8. ATORVASTATIN CALCIUM [Concomitant]
  9. CLOPIDOGREL [Concomitant]

REACTIONS (8)
  - DIZZINESS [None]
  - DRUG LEVEL DECREASED [None]
  - HYPERTENSION [None]
  - NEOPLASM SKIN [None]
  - NEPHROPATHY TOXIC [None]
  - PROSTATIC DISORDER [None]
  - TEMPORAL LOBE EPILEPSY [None]
  - VENTRICULAR HYPERTROPHY [None]
